FAERS Safety Report 9951124 (Version 1)
Quarter: 2014Q1

REPORT INFORMATION
  Report Type: Report from Study
  Country: US (occurrence: US)
  Receive Date: 20140304
  Receipt Date: 20140304
  Transmission Date: 20141002
  Serious: No
  Sender: FDA-Public Use
  Company Number: US-ABBVIE-13P-163-1067044-00

PATIENT
  Age: 59 Year
  Sex: Female

DRUGS (3)
  1. HUMIRA [Suspect]
     Indication: PSORIASIS
     Dates: start: 200802, end: 200804
  2. HUMIRA [Suspect]
     Indication: PAIN
     Dates: start: 20130128
  3. VIVELLE PATCH [Concomitant]
     Indication: PRODUCT USED FOR UNKNOWN INDICATION

REACTIONS (11)
  - Osteoarthritis [Recovering/Resolving]
  - Drug effect decreased [Not Recovered/Not Resolved]
  - Pain [Recovering/Resolving]
  - Musculoskeletal stiffness [Recovering/Resolving]
  - Local swelling [Unknown]
  - Joint swelling [Unknown]
  - Psoriasis [Unknown]
  - Skin lesion [Recovered/Resolved]
  - Skin lesion [Unknown]
  - Pruritus [Unknown]
  - Wound haemorrhage [Unknown]
